FAERS Safety Report 11299924 (Version 1)
Quarter: 2015Q3

REPORT INFORMATION
  Report Type: Spontaneous
  Country: US (occurrence: US)
  Receive Date: 20150722
  Receipt Date: 20150722
  Transmission Date: 20151125
  Serious: No
  Sender: FDA-Public Use
  Company Number: US-ELI_LILLY_AND_COMPANY-US201304004654

PATIENT
  Sex: Male

DRUGS (2)
  1. CRESTOR [Concomitant]
     Active Substance: ROSUVASTATIN CALCIUM
  2. EFFIENT [Suspect]
     Active Substance: PRASUGREL HYDROCHLORIDE
     Indication: VASCULAR GRAFT
     Dosage: 10 MG, UNKNOWN

REACTIONS (3)
  - Hypoaesthesia [Unknown]
  - Confusional state [Recovered/Resolved]
  - Pain [Unknown]
